FAERS Safety Report 6411181-2 (Version None)
Quarter: 2009Q4

REPORT INFORMATION
  Report Type: 
  Country: None (occurrence: None)
  Receive Date: 20091022
  Receipt Date: 20091012
  Transmission Date: 20100525
  Serious: Yes (Life-Threatening)
  Sender: FDA-Public Use
  Company Number: AU-PFIZER INC-2009281291

PATIENT
  Age: 41 Year

DRUGS (3)
  1. CHAMPIX [Suspect]
     Dosage: 2 MG, 1X/DAY
     Dates: start: 20090716, end: 20090923
  2. ASMOL [Concomitant]
  3. PARIET [Concomitant]

REACTIONS (3)
  - AFFECT LABILITY [None]
  - AGGRESSION [None]
  - SUICIDAL IDEATION [None]
